FAERS Safety Report 5492807-7 (Version None)
Quarter: 2007Q4

REPORT INFORMATION
  Report Type: 
  Country: None (occurrence: None)
  Receive Date: 20071023
  Receipt Date: 20071016
  Transmission Date: 20080405
  Serious: Yes (Death, Hospitalization, Other)
  Sender: FDA-Public Use
  Company Number: US-ELI_LILLY_AND_COMPANY-US200709000599

PATIENT
  Sex: Male
  Weight: 87.075 kg

DRUGS (4)
  1. ZYPREXA [Suspect]
     Indication: SCHIZOPHRENIA
     Dosage: 5 MG, UNK
     Dates: start: 20000922
  2. ZYPREXA [Suspect]
     Dosage: 10 MG, UNK
  3. TENORMIN [Concomitant]
     Dates: start: 20010201
  4. TENORMIN [Concomitant]
     Dates: start: 20040101

REACTIONS (5)
  - ABDOMINAL PAIN [None]
  - HYPERLIPIDAEMIA [None]
  - PANCREATITIS NECROTISING [None]
  - RENAL FAILURE ACUTE [None]
  - SEPTIC SHOCK [None]
